FAERS Safety Report 13693349 (Version 1)
Quarter: 2017Q2

REPORT INFORMATION
  Report Type: Spontaneous
  Country: US (occurrence: US)
  Receive Date: 20170626
  Receipt Date: 20170626
  Transmission Date: 20170830
  Serious: Yes (Other)
  Sender: FDA-Public Use
  Company Number: None

PATIENT
  Age: 33 Year
  Sex: Female
  Weight: 90 kg

DRUGS (1)
  1. OTEZLA [Suspect]
     Active Substance: APREMILAST
     Indication: PSORIASIS
     Dosage: ?          OTHER STRENGTH:MG;QUANTITY:1 TABLET(S);?
     Route: 048
     Dates: start: 20170522, end: 20170609

REACTIONS (2)
  - Suicidal ideation [None]
  - Intentional self-injury [None]

NARRATIVE: CASE EVENT DATE: 20170526
